FAERS Safety Report 21203422 (Version 1)
Quarter: 2022Q3

REPORT INFORMATION
  Report Type: Spontaneous
  Country: US (occurrence: US)
  Receive Date: 20220811
  Receipt Date: 20220811
  Transmission Date: 20221027
  Serious: Yes (Hospitalization, Other)
  Sender: FDA-Public Use
  Company Number: US-SAGENT PHARMACEUTICALS-2022SAG001692

PATIENT

DRUGS (1)
  1. DOXORUBICIN HYDROCHLORIDE [Suspect]
     Active Substance: DOXORUBICIN HYDROCHLORIDE
     Indication: Hepatocellular carcinoma
     Dosage: 150 MILLIGRAM

REACTIONS (7)
  - Pulmonary alveolar haemorrhage [Recovering/Resolving]
  - Toxicity to various agents [Recovering/Resolving]
  - Organising pneumonia [Recovering/Resolving]
  - Pulmonary oedema [Recovering/Resolving]
  - Interstitial lung disease [Recovering/Resolving]
  - Neutropenia [Recovering/Resolving]
  - Dyspnoea [Recovering/Resolving]
